FAERS Safety Report 9492411 (Version 2)
Quarter: 2013Q3

REPORT INFORMATION
  Report Type: Report from Study
  Country: AR (occurrence: AR)
  Receive Date: 20130830
  Receipt Date: 20130830
  Transmission Date: 20140515
  Serious: Yes (Death)
  Sender: FDA-Public Use
  Company Number: AR-JNJFOC-20130502039

PATIENT
  Age: 31 Year
  Sex: Female
  Weight: 54 kg

DRUGS (12)
  1. TMC207 [Suspect]
     Indication: TUBERCULOSIS
     Dosage: FOR 2 WEEKS
     Route: 048
     Dates: start: 20121213
  2. TMC207 [Suspect]
     Indication: TUBERCULOSIS
     Dosage: FOR 6 WEEKS
     Route: 048
     Dates: end: 20130425
  3. MEROPENEM [Concomitant]
     Route: 048
     Dates: start: 20121213, end: 20130425
  4. CYCLOSERINE [Concomitant]
     Route: 048
     Dates: end: 20130425
  5. CAPREOMYCIN [Concomitant]
     Dosage: 5 DAY PER WEEK
     Route: 030
     Dates: start: 20121213, end: 20130425
  6. ETHIONAMIDE [Concomitant]
     Route: 048
     Dates: end: 20130425
  7. PAS [Concomitant]
     Route: 048
     Dates: start: 20121213, end: 20130425
  8. AMOXI-CLAVULANICO [Concomitant]
     Route: 048
     Dates: start: 20121213, end: 20130425
  9. RANITIDINE [Concomitant]
  10. SALBUTAMOL [Concomitant]
     Route: 055
  11. DIONINA [Concomitant]
     Indication: HAEMOPTYSIS
  12. AMINOCAPROIC ACID [Concomitant]
     Indication: HAEMOPTYSIS

REACTIONS (1)
  - Dyspnoea [Fatal]
